FAERS Safety Report 15693873 (Version 3)
Quarter: 2020Q1

REPORT INFORMATION
  Report Type: Report from Study
  Country: CN (occurrence: CN)
  Receive Date: 20181206
  Receipt Date: 20200103
  Transmission Date: 20200409
  Serious: Yes (Hospitalization, Other)
  Sender: FDA-Public Use
  Company Number: CN-VIIV HEALTHCARE LIMITED-CN2018GSK215339

PATIENT
  Age: 48 Year
  Sex: Male
  Weight: 60 kg

DRUGS (3)
  1. TENOFOVIR DISOPROXIL FUMARATE. [Concomitant]
     Active Substance: TENOFOVIR DISOPROXIL FUMARATE
     Indication: HIV TEST POSITIVE
     Dosage: 300 MG, QD
     Route: 048
     Dates: start: 20181120, end: 20181124
  2. DOLUTEGRAVIR [Suspect]
     Active Substance: DOLUTEGRAVIR
     Indication: HIV INFECTION
     Dosage: 1 DF, QD
     Route: 048
     Dates: start: 20181120, end: 20181124
  3. LAMIVUDINE. [Concomitant]
     Active Substance: LAMIVUDINE
     Indication: HIV TEST POSITIVE
     Dosage: 300 MG, QD
     Route: 048
     Dates: start: 20181120, end: 20181124

REACTIONS (2)
  - Liver injury [Not Recovered/Not Resolved]
  - Dermatitis allergic [Not Recovered/Not Resolved]

NARRATIVE: CASE EVENT DATE: 20181125
